FAERS Safety Report 4398010-6 (Version None)
Quarter: 2004Q2

REPORT INFORMATION
  Report Type: 
  Country: None (occurrence: None)
  Receive Date: 20040621
  Receipt Date: 20040324
  Transmission Date: 20050107
  Serious: Yes (Hospitalization, Other)
  Sender: FDA-Public Use
  Company Number: 2014005

PATIENT
  Age: 48 Year
  Sex: Male
  Weight: 97.3 kg

DRUGS (46)
  1. OXYCONTIN [Suspect]
     Indication: PAIN
     Dosage: 10 MG, PM, ORAL
     Route: 048
     Dates: start: 19980306
  2. OXYCONTIN [Suspect]
     Indication: PAIN
     Dosage: 20 MG, DAILY,ORAL
     Route: 048
     Dates: start: 19980101
  3. OXYCONTIN [Suspect]
     Indication: PAIN
     Dosage: 80 MG, ORAL
     Route: 048
  4. ZOLOFT [Concomitant]
  5. PERCOCET [Concomitant]
  6. PREVACID [Concomitant]
  7. METHYLPREDNISOLONE [Concomitant]
  8. TEMAZEPAM [Concomitant]
  9. ENDOCET [Concomitant]
  10. NEURONTIN [Concomitant]
  11. TYLOX [Concomitant]
  12. MAGNESIUM OXIDE [Concomitant]
  13. FOLIC ACID [Concomitant]
  14. NORTRIPTYLINE HCL [Concomitant]
  15. ATIVAN [Concomitant]
  16. ACYCLOVIR [Concomitant]
  17. PREDNISONE [Concomitant]
  18. TYLENOL [Concomitant]
  19. TRANXENE [Concomitant]
  20. SALSALATE [Concomitant]
  21. TRAZODONE HCL [Concomitant]
  22. ORUDIS [Concomitant]
  23. PAMELOR [Concomitant]
  24. RELAFEN [Concomitant]
  25. VIOXX [Concomitant]
  26. VISTARIL [Concomitant]
  27. PAXIL [Concomitant]
  28. XANAX [Concomitant]
  29. RESTORIL [Concomitant]
  30. CELESTONE [Concomitant]
  31. BUPIVACAINE [Concomitant]
  32. ORUVAIL [Concomitant]
  33. ARTHROTEC [Concomitant]
  34. METHADONE HCL [Concomitant]
  35. ELAVIL [Concomitant]
  36. CLINORIL [Concomitant]
  37. MEPERIDINE HCL [Concomitant]
  38. PROMETHAZINE [Concomitant]
  39. HYDROZYZINE [Concomitant]
  40. ULTRAM [Concomitant]
  41. CATAPRES-TTS-1 [Concomitant]
  42. VEETIDS [Concomitant]
  43. ACETAMINOPHEN AND HYDROCODONE BITARTRATE [Concomitant]
  44. ACETAMINOPHEN AND OXYCODONE HCL [Concomitant]
  45. DURAGESIC [Concomitant]
  46. STADOL [Concomitant]

REACTIONS (23)
  - ANOREXIA [None]
  - ANXIETY [None]
  - ASTHENIA [None]
  - CHILLS [None]
  - CYST [None]
  - DEPRESSION [None]
  - DRUG ABUSER [None]
  - DRUG DEPENDENCE [None]
  - DRUG INEFFECTIVE [None]
  - DRUG TOLERANCE INCREASED [None]
  - DRUG WITHDRAWAL SYNDROME [None]
  - FATIGUE [None]
  - HEADACHE [None]
  - HERPES ZOSTER [None]
  - HYPERHIDROSIS [None]
  - INSOMNIA [None]
  - NAUSEA [None]
  - NERVOUSNESS [None]
  - NEUROPATHY [None]
  - PAIN [None]
  - PARAESTHESIA [None]
  - SUICIDAL IDEATION [None]
  - TINNITUS [None]
